FAERS Safety Report 8607647-7 (Version None)
Quarter: 2012Q3

REPORT INFORMATION
  Report Type: 
  Country: None (occurrence: None)
  Receive Date: 20120821
  Receipt Date: 20120814
  Transmission Date: 20120928
  Serious: Yes (Death, Other)
  Sender: FDA-Public Use
  Company Number: US-CELGENEUS-163-C5013-11020679

PATIENT
  Sex: Male
  Weight: 82.3 kg

DRUGS (22)
  1. THALIDOMIDE [Suspect]
     Dosage: 200 MILLIGRAM
     Route: 048
     Dates: start: 20101020, end: 20101024
  2. PRILOSEC [Concomitant]
  3. ACETAMINOPHEN [Concomitant]
     Dosage: 650 MILLIGRAM
     Route: 048
     Dates: start: 20090802, end: 20090806
  4. SENNA [Concomitant]
     Indication: CONSTIPATION PROPHYLAXIS
     Dosage: 1 TABLET
     Route: 048
     Dates: start: 20090729
  5. ZOMETA [Concomitant]
     Indication: BONE LOSS
     Dosage: 2 MILLIGRAM
     Route: 041
     Dates: start: 20090805, end: 20090805
  6. ACETAMINOPHEN [Concomitant]
     Indication: CHILLS
     Dosage: 650 MILLIGRAM
     Route: 048
     Dates: start: 20090815, end: 20090815
  7. ACETAMINOPHEN [Concomitant]
     Indication: TOOTH ABSCESS
  8. ASPIRIN [Concomitant]
     Indication: THROMBOSIS PROPHYLAXIS
     Dosage: 325 MILLIGRAM
     Route: 048
     Dates: start: 20090729
  9. ANTIBIOTICS [Concomitant]
     Indication: PROPHYLAXIS
     Route: 048
     Dates: start: 20100113, end: 20100113
  10. MELPHALAN HYDROCHLORIDE [Suspect]
     Dosage: 6 MILLIGRAM
     Route: 065
     Dates: start: 20101020, end: 20101023
  11. PRILOSEC [Concomitant]
     Dosage: 20 MILLIGRAM
     Route: 048
     Dates: start: 20090715
  12. DOCUSATE [Concomitant]
     Indication: CONSTIPATION PROPHYLAXIS
     Dosage: 1 TABLET
     Route: 048
     Dates: start: 20090729
  13. PROCRIT [Concomitant]
     Dosage: 40000 MILLIGRAM
     Route: 058
     Dates: start: 20090701
  14. VITAMIN B-12 [Concomitant]
     Route: 048
     Dates: start: 20090701
  15. PREDNISONE [Suspect]
     Indication: MULTIPLE MYELOMA
     Dosage: 195 MILLIGRAM
     Route: 065
     Dates: start: 20090729
  16. EPOETIN ALFA [Concomitant]
     Dosage: 40000 IU (INTERNATIONAL UNIT)
     Route: 058
     Dates: start: 20090916, end: 20091021
  17. PREDNISONE [Suspect]
     Dosage: 195 MILLIGRAM
     Route: 065
     Dates: start: 20101020, end: 20101024
  18. MELPHALAN HYDROCHLORIDE [Suspect]
     Indication: MULTIPLE MYELOMA
     Dosage: 24 MILLIGRAM
     Route: 065
     Dates: start: 20090729
  19. ACETAMINOPHEN [Concomitant]
     Indication: PREMEDICATION
     Dosage: 650 MILLIGRAM
     Route: 048
     Dates: start: 20090815, end: 20091021
  20. ACETAMINOPHEN [Concomitant]
     Indication: BACK PAIN
  21. THALIDOMIDE [Suspect]
     Indication: MULTIPLE MYELOMA
     Dosage: 50 MILLIGRAM
     Route: 048
     Dates: start: 20090729
  22. PAMIDRONATE DISODIUM [Concomitant]
     Indication: BONE LOSS
     Dosage: 30 MILLIGRAM
     Route: 041
     Dates: start: 20090923

REACTIONS (1)
  - OESOPHAGEAL SQUAMOUS CELL CARCINOMA [None]
